FAERS Safety Report 17101981 (Version 1)
Quarter: 2019Q4

REPORT INFORMATION
  Report Type: Spontaneous
  Country: SE (occurrence: SE)
  Receive Date: 20191202
  Receipt Date: 20191202
  Transmission Date: 20200122
  Serious: Yes (Hospitalization)
  Sender: FDA-Public Use
  Company Number: SE-ALLERGAN-1948623US

PATIENT
  Sex: Female

DRUGS (5)
  1. ZOPICLONE [Suspect]
     Active Substance: ZOPICLONE
     Indication: PRODUCT USED FOR UNKNOWN INDICATION
     Dosage: 240 MG
     Route: 048
     Dates: start: 20180829, end: 20180829
  2. LERGIGAN (PROMETHAZINE HYDROCHLORIDE) [Suspect]
     Active Substance: PROMETHAZINE HYDROCHLORIDE
     Indication: PRODUCT USED FOR UNKNOWN INDICATION
     Route: 048
     Dates: start: 20180829, end: 20180829
  3. LYRICA [Suspect]
     Active Substance: PREGABALIN
     Indication: PRODUCT USED FOR UNKNOWN INDICATION
     Dosage: UPP TILL 4000 MG
     Route: 048
     Dates: start: 20180829, end: 20180829
  4. CITALOPRAM HYDROBROMIDE - BP [Suspect]
     Active Substance: CITALOPRAM HYDROBROMIDE
     Indication: PRODUCT USED FOR UNKNOWN INDICATION
     Dosage: 420 MG, OVERDOSE
     Route: 065
     Dates: start: 20180829, end: 20180829
  5. NOZINAN [Suspect]
     Active Substance: LEVOMEPROMAZINE
     Indication: PRODUCT USED FOR UNKNOWN INDICATION
     Route: 065
     Dates: start: 20180829, end: 20180829

REACTIONS (5)
  - Intentional self-injury [Unknown]
  - Intentional overdose [Unknown]
  - Mydriasis [Unknown]
  - Depressed level of consciousness [Unknown]
  - Akathisia [Unknown]

NARRATIVE: CASE EVENT DATE: 20180829
